FAERS Safety Report 5695307-4 (Version None)
Quarter: 2008Q2

REPORT INFORMATION
  Report Type: 
  Country: None (occurrence: None)
  Receive Date: 20080404
  Receipt Date: 20080328
  Transmission Date: 20081010
  Serious: Yes (Other)
  Sender: FDA-Public Use
  Company Number: US-GENENTECH-246934

PATIENT
  Sex: Male
  Weight: 91.156 kg

DRUGS (22)
  1. BEVACIZUMAB [Suspect]
     Indication: GLIOBLASTOMA MULTIFORME
     Dosage: 1173 MG, Q2W
     Route: 042
     Dates: start: 20061215
  2. IRINOTECAN HCL [Suspect]
     Indication: GLIOBLASTOMA MULTIFORME
     Dosage: 164 MG, Q2W
     Route: 042
     Dates: start: 20070313
  3. NORVASC [Concomitant]
     Indication: HYPERTENSION
     Dates: start: 20060513, end: 20070607
  4. METOPROLOL TARTRATE [Concomitant]
     Indication: HYPERTENSION
     Dates: start: 20060426
  5. DECADRON [Concomitant]
     Indication: PROPHYLAXIS
     Dates: start: 20061109
  6. HYDROCHLOROTHIAZIDE [Concomitant]
     Indication: HYPERTENSION
     Dates: start: 20061106, end: 20070607
  7. ALLOPURINOL [Concomitant]
     Indication: BLOOD URIC ACID INCREASED
     Dates: start: 20070515, end: 20070707
  8. NEUPOGEN [Concomitant]
     Indication: NEUTROPENIA
     Dates: start: 20070502
  9. LOVENOX [Concomitant]
     Indication: DEEP VEIN THROMBOSIS
     Dates: start: 20070112
  10. ARANESP [Concomitant]
     Indication: ANAEMIA
     Dates: start: 20070531
  11. K-DUR [Concomitant]
     Indication: HYPOKALAEMIA
     Dates: start: 20070328
  12. KEPPRA [Concomitant]
     Indication: CONVULSION
     Dates: start: 20060407
  13. METFORMIN HCL [Concomitant]
     Indication: DIABETES MELLITUS
     Dates: start: 20061106, end: 20070515
  14. BACTRIM [Concomitant]
     Indication: INFECTION PROPHYLAXIS
     Dates: start: 20060601, end: 20070619
  15. COLACE [Concomitant]
     Indication: CONSTIPATION
     Dates: start: 20061211, end: 20070209
  16. LANTUS [Concomitant]
     Indication: DIABETES MELLITUS
     Dates: start: 20061106, end: 20070501
  17. LORAZEPAM [Concomitant]
     Indication: ANXIETY
     Dates: start: 20060404
  18. SENOKOT [Concomitant]
     Indication: CONSTIPATION
     Dates: start: 20070207
  19. MORPHINE [Concomitant]
     Indication: PAIN
     Dates: start: 20070126, end: 20070126
  20. VERSED [Concomitant]
     Indication: PAIN
     Dates: start: 20070126, end: 20070126
  21. ALOXI [Concomitant]
     Indication: NAUSEA
     Dates: start: 20070313, end: 20070529
  22. ATROPINE [Concomitant]
     Indication: PREMEDICATION
     Dates: start: 20070313

REACTIONS (1)
  - CEREBRAL HAEMORRHAGE [None]
